FAERS Safety Report 15275237 (Version 6)
Quarter: 2021Q1

REPORT INFORMATION
  Report Type: Report from Study
  Country: US (occurrence: US)
  Receive Date: 20180814
  Receipt Date: 20210212
  Transmission Date: 20210419
  Serious: Yes (Death, Life-Threatening, Hospitalization, Other)
  Sender: FDA-Public Use
  Company Number: PHEH2018US032264

PATIENT
  Age: 4 Year
  Sex: Female
  Weight: 22 kg

DRUGS (7)
  1. FLUDARABINE [Concomitant]
     Active Substance: FLUDARABINE PHOSPHATE
     Indication: CHEMOTHERAPY
     Dosage: UNK
     Route: 065
  2. KYMRIAH [Suspect]
     Active Substance: TISAGENLECLEUCEL
     Indication: ACUTE LYMPHOCYTIC LEUKAEMIA RECURRENT
  3. KYMRIAH [Suspect]
     Active Substance: TISAGENLECLEUCEL
     Indication: B-CELL TYPE ACUTE LEUKAEMIA
     Dosage: UNK UNK, ONCE/SINGLE
     Route: 041
     Dates: start: 20180409, end: 20180409
  4. DEXAMETHASONE. [Concomitant]
     Active Substance: DEXAMETHASONE
     Indication: PALLIATIVE CARE
     Dosage: UNK (OCCASIONAL PULSES)
     Route: 048
  5. CYCLOPHOSPHAMIDE. [Concomitant]
     Active Substance: CYCLOPHOSPHAMIDE
     Indication: CHEMOTHERAPY
     Dosage: UNK
     Route: 065
  6. METHOTREXATE. [Concomitant]
     Active Substance: METHOTREXATE
     Indication: PALLIATIVE CARE
     Dosage: UNK
     Route: 048
  7. PEG/L?ASPARAGINASE [Concomitant]
     Active Substance: PEGASPARGASE
     Indication: PALLIATIVE CARE
     Dosage: UNK (EVERY FEW WEEKS)
     Route: 048

REACTIONS (22)
  - Respiratory disorder [Fatal]
  - Headache [Recovered/Resolved]
  - Pyrexia [Recovered/Resolved]
  - Malignant neoplasm progression [Fatal]
  - Tachycardia [Recovered/Resolved]
  - Chills [Recovered/Resolved]
  - Platelet count decreased [Unknown]
  - Haemoglobin decreased [Unknown]
  - Oxygen saturation decreased [Fatal]
  - Neutrophil count decreased [Unknown]
  - Treatment failure [Unknown]
  - Hypotension [Recovered/Resolved]
  - Lymphocyte count decreased [Unknown]
  - Minimal residual disease [Unknown]
  - Respiratory arrest [Fatal]
  - Acute lymphocytic leukaemia recurrent [Not Recovered/Not Resolved]
  - Nausea [Recovered/Resolved]
  - Klebsiella infection [Unknown]
  - Pneumonia [Fatal]
  - Haematocrit decreased [Unknown]
  - B-cell type acute leukaemia [Fatal]
  - White blood cell count decreased [Unknown]

NARRATIVE: CASE EVENT DATE: 20180412
